FAERS Safety Report 9305399 (Version 2)
Quarter: 2013Q3

REPORT INFORMATION
  Report Type: Spontaneous
  Country: US (occurrence: US)
  Receive Date: 20130523
  Receipt Date: 20130814
  Transmission Date: 20140515
  Serious: Yes (Life-Threatening)
  Sender: FDA-Public Use
  Company Number: PHEH2013US011130

PATIENT
  Age: 55 Year
  Sex: Male
  Weight: 321 kg

DRUGS (2)
  1. DIOVAN [Suspect]
     Indication: BLOOD PRESSURE
     Dosage: 160 MG DAILY
     Route: 048
     Dates: start: 201201
  2. LOVAZA [Concomitant]
     Indication: LIPIDS
     Dosage: 4 G, DAILY
     Route: 048
     Dates: start: 20130111

REACTIONS (1)
  - Non-Hodgkin^s lymphoma [Recovering/Resolving]
